FAERS Safety Report 16625617 (Version 1)
Quarter: 2019Q3

REPORT INFORMATION
  Report Type: Spontaneous
  Country: US (occurrence: US)
  Receive Date: 20190724
  Receipt Date: 20190724
  Transmission Date: 20191004
  Serious: Yes (Hospitalization, Other)
  Sender: FDA-Public Use
  Company Number: US-MYLANLABS-2019M1067742

PATIENT
  Age: 3 Year
  Sex: Male

DRUGS (1)
  1. ARIPIPRAZOLE. [Suspect]
     Active Substance: ARIPIPRAZOLE
     Indication: PRODUCT USED FOR UNKNOWN INDICATION
     Dosage: TEN 20MG TABLETS (15MG/KG)
     Route: 048

REACTIONS (11)
  - Slow speech [Recovered/Resolved]
  - Trismus [Recovered/Resolved]
  - Ataxia [Recovered/Resolved]
  - Muscle twitching [Recovered/Resolved]
  - Somnolence [Recovered/Resolved]
  - Accidental overdose [Recovered/Resolved]
  - Bradycardia [Recovered/Resolved]
  - Blood pressure systolic decreased [Recovered/Resolved]
  - Hypokalaemia [Recovered/Resolved]
  - Lethargy [Recovered/Resolved]
  - Muscle contractions involuntary [Recovered/Resolved]
